FAERS Safety Report 12297547 (Version 3)
Quarter: 2016Q2

REPORT INFORMATION
  Report Type: Report from Study
  Country: GB (occurrence: GB)
  Receive Date: 20160422
  Receipt Date: 20160517
  Transmission Date: 20160815
  Serious: Yes (Life-Threatening, Hospitalization)
  Sender: FDA-Public Use
  Company Number: GB-VERTEX PHARMACEUTICALS-2016-002474

PATIENT
  Age: 32 Year
  Sex: Male
  Weight: 60 kg

DRUGS (17)
  1. APIDRA [Concomitant]
     Active Substance: INSULIN GLULISINE
  2. DORNASE ALFA [Concomitant]
     Active Substance: DORNASE ALFA
  3. OMEPRAZOLE. [Concomitant]
     Active Substance: OMEPRAZOLE
  4. ITRACONAZOLE. [Concomitant]
     Active Substance: ITRACONAZOLE
  5. AZITHROMYCIN ANHYDROUS. [Concomitant]
     Active Substance: AZITHROMYCIN ANHYDROUS
  6. MORPHINE SULPHATE [Concomitant]
     Active Substance: MORPHINE SULFATE
  7. VITAMIN A AND D [Concomitant]
     Active Substance: LANOLIN\PETROLATUM
  8. PARACETAMOL [Concomitant]
     Active Substance: ACETAMINOPHEN
  9. TIOTROPIUM [Concomitant]
     Active Substance: TIOTROPIUM
  10. COLISTIMETHATE [Concomitant]
     Active Substance: COLISTIMETHATE SODIUM
  11. CREON [Concomitant]
     Active Substance: PANCRELIPASE AMYLASE\PANCRELIPASE LIPASE\PANCRELIPASE PROTEASE
  12. ORKAMBI [Suspect]
     Active Substance: IVACAFTOR\LUMACAFTOR
     Dosage: 2 DF, BID
     Route: 048
     Dates: start: 20160301, end: 20160304
  13. ORKAMBI [Suspect]
     Active Substance: IVACAFTOR\LUMACAFTOR
     Indication: CYSTIC FIBROSIS
     Dosage: 1 DF, QD
     Route: 048
     Dates: start: 20160223, end: 20160301
  14. VITAMIN E [Concomitant]
     Active Substance: .ALPHA.-TOCOPHEROL
  15. LANTUS [Concomitant]
     Active Substance: INSULIN GLARGINE
  16. SERETIDE [Concomitant]
     Active Substance: FLUTICASONE PROPIONATE\SALMETEROL XINAFOATE
  17. SODIUM CHLORIDE. [Concomitant]
     Active Substance: SODIUM CHLORIDE

REACTIONS (3)
  - Infective pulmonary exacerbation of cystic fibrosis [Recovered/Resolved]
  - Diabetes mellitus inadequate control [Unknown]
  - Hypoglycaemia [Unknown]

NARRATIVE: CASE EVENT DATE: 20160302
